FAERS Safety Report 11838678 (Version 1)
Quarter: 2015Q4

REPORT INFORMATION
  Report Type: Spontaneous
  Country: US (occurrence: US)
  Receive Date: 20151215
  Receipt Date: 20151215
  Transmission Date: 20160305
  Serious: No
  Sender: FDA-Public Use
  Company Number: US-SA-2015SA081676

PATIENT
  Sex: Male

DRUGS (2)
  1. TAXOTERE [Suspect]
     Active Substance: DOCETAXEL
     Route: 065
  2. DEXAMETHASONE. [Concomitant]
     Active Substance: DEXAMETHASONE

REACTIONS (6)
  - Flushing [Unknown]
  - Musculoskeletal stiffness [Unknown]
  - Depression [Unknown]
  - Pain [Unknown]
  - Fatigue [Unknown]
  - Memory impairment [Unknown]
